FAERS Safety Report 22212832 (Version 1)
Quarter: 2023Q2

REPORT INFORMATION
  Report Type: Spontaneous
  Country: US (occurrence: None)
  Receive Date: 20230412
  Receipt Date: 20230412
  Transmission Date: 20230721
  Serious: Yes (Hospitalization)
  Sender: FDA-Public Use
  Company Number: None

PATIENT
  Age: 21 Year
  Sex: Female
  Weight: 61.2 kg

DRUGS (5)
  1. .DELTA.8-TETRAHYDROCANNABINOL\HERBALS [Suspect]
     Active Substance: .DELTA.8-TETRAHYDROCANNABINOL\HERBALS
     Indication: Anxiety
     Dosage: OTHER QUANTITY : 1 CANNABIS EDIBLE;?FREQUENCY : AT BEDTIME;?
     Route: 048
     Dates: start: 20220708, end: 20221007
  2. St. Johns Wort Women^s Probiotic [Concomitant]
  3. VITAMIN D [Concomitant]
     Active Substance: VITAMIN D NOS
  4. MAGNESIUM [Concomitant]
     Active Substance: MAGNESIUM
  5. Zinc Ashwagandha [Concomitant]

REACTIONS (3)
  - Rebound psychosis [None]
  - Drug abuse [None]
  - Suspected product contamination [None]

NARRATIVE: CASE EVENT DATE: 20221015
